FAERS Safety Report 7539631-9 (Version None)
Quarter: 2011Q2

REPORT INFORMATION
  Report Type: 
  Country: None (occurrence: None)
  Receive Date: 20110609
  Receipt Date: 20110609
  Transmission Date: 20111010
  Serious: No
  Sender: FDA-Public Use
  Company Number: None

PATIENT
  Age: 52 Year
  Sex: Female
  Weight: 104.7809 kg

DRUGS (1)
  1. FLUOXETINE [Suspect]
     Dosage: 10 MG 4 X A DAY

REACTIONS (2)
  - DYSKINESIA [None]
  - IRRITABILITY [None]
